FAERS Safety Report 5836619-0 (Version None)
Quarter: 2008Q3

REPORT INFORMATION
  Report Type: 
  Country: None (occurrence: None)
  Receive Date: 20080807
  Receipt Date: 20080728
  Transmission Date: 20090109
  Serious: Yes (Other)
  Sender: FDA-Public Use
  Company Number: DE-ELI_LILLY_AND_COMPANY-DE200807006049

PATIENT
  Age: 84 Year
  Sex: Female

DRUGS (1)
  1. FORTEO [Suspect]
     Indication: OSTEOPOROSIS
     Dosage: 20 UG, UNKNOWN
     Route: 058
     Dates: start: 20080617

REACTIONS (5)
  - ABDOMINAL PAIN UPPER [None]
  - ARRHYTHMIA [None]
  - BLOOD CHOLESTEROL INCREASED [None]
  - DIZZINESS [None]
  - HYPERTENSION [None]
